FAERS Safety Report 8334210-8 (Version None)
Quarter: 2012Q2

REPORT INFORMATION
  Report Type: 
  Country: None (occurrence: None)
  Receive Date: 20120503
  Receipt Date: 20120425
  Transmission Date: 20120825
  Serious: Yes (Death)
  Sender: FDA-Public Use
  Company Number: US-GLAXOSMITHKLINE-A0975991A

PATIENT
  Age: 42 Year
  Sex: Male
  Weight: 79.5 kg

DRUGS (3)
  1. LATUDA [Suspect]
     Indication: AFFECTIVE DISORDER
     Route: 048
     Dates: start: 20110928, end: 20120306
  2. LORAZEPAM [Suspect]
     Indication: ANXIETY
     Dosage: 1MG AS REQUIRED
     Route: 048
     Dates: end: 20120306
  3. WELLBUTRIN SR [Suspect]
     Indication: PRODUCT USED FOR UNKNOWN INDICATION
     Dosage: 150MG TWICE PER DAY
     Route: 048
     Dates: end: 20120306

REACTIONS (1)
  - COMPLETED SUICIDE [None]
